FAERS Safety Report 10789121 (Version 2)
Quarter: 2015Q1

REPORT INFORMATION
  Report Type: Spontaneous
  Country: US (occurrence: US)
  Receive Date: 20150212
  Receipt Date: 20150213
  Transmission Date: 20150721
  Serious: Yes (Death, Hospitalization)
  Sender: FDA-Public Use
  Company Number: PHHY2015US014576

PATIENT
  Age: 65 Year
  Sex: Female

DRUGS (4)
  1. DAPSONE. [Concomitant]
     Active Substance: DAPSONE
     Indication: PROPHYLAXIS
     Route: 065
  2. TACROLIMUS. [Suspect]
     Active Substance: TACROLIMUS
     Indication: LUNG TRANSPLANT
     Route: 065
  3. MYCOPHENOLIC ACID. [Suspect]
     Active Substance: MYCOPHENOLIC ACID
     Indication: LUNG TRANSPLANT
     Route: 065
  4. PREDNISONE. [Suspect]
     Active Substance: PREDNISONE
     Indication: LUNG TRANSPLANT
     Route: 065

REACTIONS (7)
  - Failure to thrive [Unknown]
  - Obliterative bronchiolitis [Fatal]
  - Diarrhoea [Recovered/Resolved]
  - Weight decreased [Unknown]
  - Diverticulitis [Unknown]
  - Clostridium difficile infection [Recovered/Resolved]
  - Dehydration [Unknown]
